FAERS Safety Report 23574833 (Version 1)
Quarter: 2024Q1

REPORT INFORMATION
  Report Type: Spontaneous
  Country: US (occurrence: None)
  Receive Date: 20240227
  Receipt Date: 20240227
  Transmission Date: 20240409
  Serious: Yes (Hospitalization)
  Sender: FDA-Public Use
  Company Number: None

PATIENT
  Age: 54 Year
  Sex: Male

DRUGS (20)
  1. AMBRISENTAN [Suspect]
     Active Substance: AMBRISENTAN
     Indication: Pulmonary hypertension
     Dosage: FREQUENCY : DAILY;?
     Route: 048
     Dates: start: 20220121
  2. TADALAFIL [Concomitant]
     Active Substance: TADALAFIL
  3. TREPROSTINIL [Concomitant]
     Active Substance: TREPROSTINIL
  4. DIGOXIN [Concomitant]
     Active Substance: DIGOXIN
  5. WARFARIN [Concomitant]
     Active Substance: WARFARIN
  6. FOLIC ACID [Concomitant]
     Active Substance: FOLIC ACID
  7. FERROUS SULFATE [Concomitant]
     Active Substance: FERROUS SULFATE
  8. DIGOXIN [Concomitant]
     Active Substance: DIGOXIN
  9. MIDODRINE [Concomitant]
     Active Substance: MIDODRINE
  10. OMEPRAZOLE [Concomitant]
     Active Substance: OMEPRAZOLE
  11. ONDANSETRON [Concomitant]
     Active Substance: ONDANSETRON
  12. METRONIDAZOLE TOP GEL [Concomitant]
  13. KETOCONAZOLE TOP SHAMPOO [Concomitant]
  14. TACROLIMUS [Concomitant]
     Active Substance: TACROLIMUS
  15. FLUOCINONIDE [Suspect]
     Active Substance: FLUOCINONIDE
  16. MYCOPHENOLIC ACID [Concomitant]
     Active Substance: MYCOPHENOLIC ACID
  17. HYDROXYCHLOROQUINE [Concomitant]
     Active Substance: HYDROXYCHLOROQUINE
  18. METOPROLOL [Concomitant]
     Active Substance: METOPROLOL
  19. FUROSEMIDE [Concomitant]
     Active Substance: FUROSEMIDE
  20. POTASSIUM CHLORIDE [Concomitant]
     Active Substance: POTASSIUM CHLORIDE

REACTIONS (4)
  - Acute respiratory failure [None]
  - Influenza [None]
  - Pneumonia [None]
  - Supraventricular tachycardia [None]

NARRATIVE: CASE EVENT DATE: 20240206
